FAERS Safety Report 6980991-5 (Version None)
Quarter: 2010Q3

REPORT INFORMATION
  Report Type: 
  Country: None (occurrence: None)
  Receive Date: 20100914
  Receipt Date: 20100904
  Transmission Date: 20110219
  Serious: Yes (Hospitalization)
  Sender: FDA-Public Use
  Company Number: B0673928A

PATIENT
  Age: 55 Year
  Sex: Male

DRUGS (1)
  1. AUGMENTIN '125' [Suspect]
     Indication: RESPIRATORY TRACT CONGESTION
     Route: 048

REACTIONS (2)
  - HYPERHIDROSIS [None]
  - PULSE PRESSURE DECREASED [None]
